FAERS Safety Report 8110924-X (Version None)
Quarter: 2012Q1

REPORT INFORMATION
  Report Type: 
  Country: None (occurrence: None)
  Receive Date: 20120203
  Receipt Date: 20110621
  Transmission Date: 20120608
  Serious: Yes (Hospitalization)
  Sender: FDA-Public Use
  Company Number: US-GLAXOSMITHKLINE-A0724920A

PATIENT
  Age: 13 Year
  Sex: Male
  Weight: 47.7 kg

DRUGS (4)
  1. LEVETIRACETAM [Suspect]
     Indication: EPILEPSY
     Dates: start: 20070510, end: 20070511
  2. DEPAKOTE [Suspect]
     Indication: EPILEPSY
     Dosage: 750MG PER DAY
     Route: 048
     Dates: start: 20070503, end: 20070510
  3. LAMICTAL [Suspect]
     Indication: EPILEPSY
     Route: 048
     Dates: start: 20070301, end: 20070510
  4. VALPROIC ACID [Suspect]
     Indication: EPILEPSY
     Dosage: 750MG PER DAY
     Route: 048
     Dates: start: 20070301, end: 20070503

REACTIONS (5)
  - PYREXIA [None]
  - WHITE BLOOD CELL COUNT DECREASED [None]
  - DRUG INTERACTION [None]
  - RASH [None]
  - STEVENS-JOHNSON SYNDROME [None]
